FAERS Safety Report 5509155-9 (Version None)
Quarter: 2007Q4

REPORT INFORMATION
  Report Type: 
  Country: None (occurrence: None)
  Receive Date: 20071107
  Receipt Date: 20071029
  Transmission Date: 20080405
  Serious: Yes (Other)
  Sender: FDA-Public Use
  Company Number: BR-ROCHE-528789

PATIENT
  Age: 25 Year
  Sex: Female
  Weight: 56 kg

DRUGS (3)
  1. ISOTRETINOIN [Suspect]
     Indication: ACNE
     Dosage: STRENGTH AND FORMULATION TAKEN 10+20 MG CAPSULES.
     Route: 048
     Dates: start: 20070601, end: 20071024
  2. MINIMA [Suspect]
     Indication: CONTRACEPTION
     Route: 065
     Dates: start: 20070901, end: 20071029
  3. DIANE-35 [Concomitant]
     Indication: CONTRACEPTION
     Dates: end: 20070801

REACTIONS (2)
  - NO ADVERSE EVENT [None]
  - PREGNANCY [None]
